FAERS Safety Report 6420934-6 (Version None)
Quarter: 2009Q4

REPORT INFORMATION
  Report Type: 
  Country: None (occurrence: None)
  Receive Date: 20091030
  Receipt Date: 20091022
  Transmission Date: 20100525
  Serious: Yes (Hospitalization)
  Sender: FDA-Public Use
  Company Number: HR-ASTRAZENECA-2009SE22090

PATIENT
  Age: 23183 Day
  Sex: Female
  Weight: 80 kg

DRUGS (2)
  1. FASLODEX [Suspect]
     Indication: BREAST CANCER METASTATIC
     Route: 030
     Dates: start: 20090710, end: 20091022
  2. PAMIDRONATE DISODIUM [Concomitant]
     Indication: METASTASES TO BONE
     Route: 042
     Dates: start: 20080101

REACTIONS (1)
  - PULMONARY EMBOLISM [None]
